FAERS Safety Report 4954082-9 (Version None)
Quarter: 2006Q1

REPORT INFORMATION
  Report Type: 
  Country: None (occurrence: None)
  Receive Date: 20060327
  Receipt Date: 20060316
  Transmission Date: 20060701
  Serious: Yes (Other)
  Sender: FDA-Public Use
  Company Number: US-GLAXOSMITHKLINE-A0598864A

PATIENT
  Age: 22 Year
  Sex: Female

DRUGS (6)
  1. ROSIGLITAZONE [Suspect]
     Indication: INSULIN RESISTANCE
     Dosage: 8MG PER DAY
     Route: 048
     Dates: start: 20030519, end: 20030523
  2. HEPARIN [Concomitant]
     Dosage: 60UNIT PER DAY
     Route: 042
     Dates: start: 20050519, end: 20050519
  3. DEXTROSE 50% [Concomitant]
     Dosage: 20.6G PER DAY
     Route: 042
     Dates: start: 20050519, end: 20050519
  4. REGULAR INSULIN [Concomitant]
     Dosage: 1.9UNIT PER DAY
     Route: 042
     Dates: start: 20050519, end: 20050519
  5. RADIATION [Concomitant]
     Dates: start: 20050519, end: 20050519
  6. IUD [Concomitant]

REACTIONS (2)
  - ABORTION SPONTANEOUS [None]
  - DRUG EXPOSURE DURING PREGNANCY [None]
